FAERS Safety Report 24142129 (Version 4)
Quarter: 2024Q4

REPORT INFORMATION
  Report Type: Spontaneous
  Country: US (occurrence: US)
  Receive Date: 20240726
  Receipt Date: 20241009
  Transmission Date: 20250115
  Serious: Yes (Hospitalization, Other)
  Sender: GLAXOSMITHKLINE
  Company Number: US-GLAXOSMITHKLINE-US2024AMR091316

PATIENT

DRUGS (2)
  1. ZEJULA [Suspect]
     Active Substance: NIRAPARIB
     Indication: Ovarian cancer
     Dosage: 300 MG, QD
  2. ZEJULA [Suspect]
     Active Substance: NIRAPARIB
     Dosage: 100 MG, QD

REACTIONS (9)
  - Hip arthroplasty [Unknown]
  - Thrombosis [Unknown]
  - Platelet count decreased [Unknown]
  - Trigger finger [Unknown]
  - Peripheral swelling [Unknown]
  - Neuralgia [Unknown]
  - Pain [Unknown]
  - Constipation [Unknown]
  - Incorrect dose administered [Unknown]
